FAERS Safety Report 8416338-7 (Version None)
Quarter: 2012Q2

REPORT INFORMATION
  Report Type: 
  Country: None (occurrence: None)
  Receive Date: 20120606
  Receipt Date: 20120528
  Transmission Date: 20120825
  Serious: Yes (Other)
  Sender: FDA-Public Use
  Company Number: CA-JNJFOC-20120519811

PATIENT
  Sex: Female
  Weight: 102 kg

DRUGS (8)
  1. FOLIC ACID [Concomitant]
     Route: 065
  2. ELAVIL [Concomitant]
     Route: 065
  3. ESCITALOPRAM [Concomitant]
     Route: 065
  4. REMICADE [Suspect]
     Indication: RHEUMATOID ARTHRITIS
     Route: 042
     Dates: start: 20120307
  5. MORPHINE [Concomitant]
     Route: 065
  6. METHOTREXATE [Concomitant]
     Route: 065
  7. CABERGOLINE [Concomitant]
     Route: 065
  8. PANTOPRAZOLE [Concomitant]
     Route: 065

REACTIONS (2)
  - FALL [None]
  - FIBULA FRACTURE [None]
